FAERS Safety Report 9364610 (Version 1)
Quarter: 2013Q2

REPORT INFORMATION
  Report Type: Spontaneous
  Country: BE (occurrence: BE)
  Receive Date: 20130624
  Receipt Date: 20130624
  Transmission Date: 20140414
  Serious: Yes (Life-Threatening, Hospitalization, Other)
  Sender: FDA-Public Use
  Company Number: BE-ASTRAZENECA-2013SE48069

PATIENT
  Age: 19002 Day
  Sex: Male
  Weight: 70 kg

DRUGS (7)
  1. BRILIQUE [Suspect]
     Indication: ACUTE CORONARY SYNDROME
     Route: 048
     Dates: start: 20130307, end: 20130307
  2. ASAFLOW [Concomitant]
     Route: 048
     Dates: start: 20130307
  3. CETIRIZINE [Concomitant]
     Route: 048
     Dates: start: 20130307
  4. CRESTOR [Concomitant]
     Route: 048
     Dates: start: 20130307
  5. EFEXOR XL [Concomitant]
     Route: 048
     Dates: start: 20130307
  6. EMCONCOR MINOR [Concomitant]
     Route: 048
     Dates: start: 20130307
  7. PANTOMED [Concomitant]
     Route: 048
     Dates: start: 20130307

REACTIONS (1)
  - Acute coronary syndrome [Recovered/Resolved with Sequelae]
